FAERS Safety Report 6068294-7 (Version None)
Quarter: 2009Q1

REPORT INFORMATION
  Report Type: 
  Country: None (occurrence: None)
  Receive Date: 20090206
  Receipt Date: 20090202
  Transmission Date: 20090719
  Serious: Yes (Death, Other)
  Sender: FDA-Public Use
  Company Number: PHHY2008JP30006

PATIENT
  Sex: Male

DRUGS (8)
  1. ZOLEDRONIC ACID [Suspect]
     Indication: METASTASES TO BONE
     Dosage: 4 MG (EVERY FOUR WEEKS)
     Route: 042
     Dates: start: 20080306, end: 20080410
  2. ZOLEDRONIC ACID [Suspect]
     Indication: LUNG NEOPLASM MALIGNANT
  3. VOLTAREN                           /00372303/ [Concomitant]
     Dosage: 50 MG
     Route: 054
     Dates: start: 20080221, end: 20080607
  4. OMEPRAL [Concomitant]
     Dosage: 20 MG
     Route: 048
     Dates: start: 20071022, end: 20080606
  5. BLOPRESS [Concomitant]
     Dosage: 8 MG
     Route: 048
     Dates: start: 20071222, end: 20080606
  6. MAGMITT KENEI [Concomitant]
     Dosage: 990 MG
     Route: 048
     Dates: start: 20071223, end: 20080606
  7. PURSENNID                               /SCH/ [Concomitant]
     Dosage: 12 MG
     Route: 048
     Dates: start: 20071223, end: 20080606
  8. OXYCONTIN [Concomitant]
     Dosage: 10 MG
     Route: 048
     Dates: start: 20080605, end: 20080606

REACTIONS (2)
  - ANOREXIA [None]
  - RENAL IMPAIRMENT [None]
